APPROVED DRUG PRODUCT: NEO-HYDELTRASOL
Active Ingredient: NEOMYCIN SULFATE; PREDNISOLONE SODIUM PHOSPHATE
Strength: EQ 3.5MG BASE/GM;EQ 0.25% PHOSPHATE
Dosage Form/Route: OINTMENT;OPHTHALMIC
Application: N050378 | Product #001
Applicant: MERCK AND CO INC
Approved: Approved Prior to Jan 1, 1982 | RLD: No | RS: No | Type: DISCN